FAERS Safety Report 16035067 (Version 1)
Quarter: 2019Q1

REPORT INFORMATION
  Report Type: Spontaneous
  Country: US (occurrence: US)
  Receive Date: 20190205
  Receipt Date: 20190205
  Transmission Date: 20190418
  Serious: No
  Sender: FDA-Public Use
  Company Number: None

PATIENT
  Age: 58 Year
  Sex: Male

DRUGS (1)
  1. GLATIRAMER  40MG PFS INJ (12/BOX) [Suspect]
     Active Substance: GLATIRAMER
     Dates: start: 20181231

REACTIONS (4)
  - Product substitution issue [None]
  - Insurance issue [None]
  - Movement disorder [None]
  - Fatigue [None]

NARRATIVE: CASE EVENT DATE: 20190205
